FAERS Safety Report 18489865 (Version 1)
Quarter: 2020Q4

REPORT INFORMATION
  Report Type: Spontaneous
  Country: CN (occurrence: CN)
  Receive Date: 20201111
  Receipt Date: 20201111
  Transmission Date: 20210114
  Serious: Yes (Other)
  Sender: FDA-Public Use
  Company Number: CN-PFIZER INC-2020439242

PATIENT
  Age: 84 Year
  Sex: Male
  Weight: 60 kg

DRUGS (1)
  1. TAZOCIN [Suspect]
     Active Substance: PIPERACILLIN SODIUM\TAZOBACTAM SODIUM
     Indication: SKIN INFECTION
     Dosage: 4.5 G, 1X/DAY
     Route: 041
     Dates: start: 20200711, end: 20200711

REACTIONS (3)
  - Off label use [Unknown]
  - Eye oedema [Recovered/Resolved]
  - Orbital oedema [Recovered/Resolved]

NARRATIVE: CASE EVENT DATE: 20200711
